FAERS Safety Report 26048202 (Version 1)
Quarter: 2025Q4

REPORT INFORMATION
  Report Type: Spontaneous
  Country: US (occurrence: US)
  Receive Date: 20251114
  Receipt Date: 20251114
  Transmission Date: 20260117
  Serious: No
  Sender: MYLAN
  Company Number: US-MYLANLABS-2025M1095182

PATIENT
  Age: 35 Year
  Sex: Female

DRUGS (4)
  1. XULANE [Suspect]
     Active Substance: ETHINYL ESTRADIOL\NORELGESTROMIN
     Indication: Contraception
     Dosage: 150 PER 35 MICROGRAM, QD (ONCE A DAY)
     Dates: start: 20251102
  2. XULANE [Suspect]
     Active Substance: ETHINYL ESTRADIOL\NORELGESTROMIN
     Dosage: 150 PER 35 MICROGRAM, QD (ONCE A DAY)
     Route: 062
     Dates: start: 20251102
  3. XULANE [Suspect]
     Active Substance: ETHINYL ESTRADIOL\NORELGESTROMIN
     Dosage: 150 PER 35 MICROGRAM, QD (ONCE A DAY)
     Route: 062
     Dates: start: 20251102
  4. XULANE [Suspect]
     Active Substance: ETHINYL ESTRADIOL\NORELGESTROMIN
     Dosage: 150 PER 35 MICROGRAM, QD (ONCE A DAY)
     Dates: start: 20251102

REACTIONS (2)
  - Wrong technique in product usage process [Unknown]
  - Product adhesion issue [Unknown]

NARRATIVE: CASE EVENT DATE: 20251102
